FAERS Safety Report 19019395 (Version 1)
Quarter: 2021Q1

REPORT INFORMATION
  Report Type: Spontaneous
  Country: US (occurrence: US)
  Receive Date: 20210317
  Receipt Date: 20210317
  Transmission Date: 20210420
  Serious: No
  Sender: FDA-Public Use
  Company Number: US-CADILA HEALTHCARE LIMITED-US-ZYDUS-059625

PATIENT
  Sex: Male

DRUGS (1)
  1. DUTASTERIDE+TAMSULOSIN CAPSULE [Suspect]
     Active Substance: DUTASTERIDE\TAMSULOSIN HYDROCHLORIDE
     Indication: PRODUCT USED FOR UNKNOWN INDICATION
     Route: 048

REACTIONS (3)
  - Throat irritation [Unknown]
  - Product administration error [Unknown]
  - Choking [Recovered/Resolved]
